FAERS Safety Report 19455503 (Version 4)
Quarter: 2021Q3

REPORT INFORMATION
  Report Type: Report from Study
  Country: None (occurrence: US)
  Receive Date: 20210623
  Receipt Date: 20210729
  Transmission Date: 20211014
  Serious: Yes (Other)
  Sender: FDA-Public Use
  Company Number: US-ABBVIE-21K-163-3959305-00

PATIENT
  Age: 56 Year
  Sex: Female
  Weight: 132.11 kg

DRUGS (10)
  1. HUMIRA [Suspect]
     Active Substance: ADALIMUMAB
     Indication: HIDRADENITIS
     Dosage: CF
     Route: 058
     Dates: start: 202002, end: 20210618
  2. VITAMIN D2 [Concomitant]
     Active Substance: ERGOCALCIFEROL
     Indication: MALABSORPTION
     Dosage: 2 EVERYDAY 50 UNITS
  3. OXYBUTYNIN. [Concomitant]
     Active Substance: OXYBUTYNIN CHLORIDE
     Indication: IN VITRO FERTILISATION
     Dosage: 10 MG
  4. LISINOPRIL. [Concomitant]
     Active Substance: LISINOPRIL
     Indication: BLOOD PRESSURE MEASUREMENT
     Dosage: 10 MG
  5. MAGNESIUM [Concomitant]
     Active Substance: MAGNESIUM
     Indication: MALABSORPTION
     Dosage: 0.5MCG CAPLET
  6. CALCITROL [Concomitant]
     Indication: MALABSORPTION
     Dosage: 0.5MCG CAPLET
  7. CALCIUM [Concomitant]
     Active Substance: CALCIUM
     Indication: MALABSORPTION
     Dosage: 0.5MCG CAPLET
  8. CYCLOBENZAPRINE. [Concomitant]
     Active Substance: CYCLOBENZAPRINE
     Indication: MUSCLE SPASMS
  9. CYCLOBENZAPRINE. [Concomitant]
     Active Substance: CYCLOBENZAPRINE
     Indication: MUSCLE SPASMS
  10. MODERNA COVID?19 VACCINE [Concomitant]
     Active Substance: CX-024414
     Indication: COVID-19 IMMUNISATION
     Dosage: MODERNA
     Route: 030
     Dates: start: 20210710, end: 20210710

REACTIONS (10)
  - Limb mass [Not Recovered/Not Resolved]
  - Musculoskeletal pain [Recovering/Resolving]
  - Mass [Recovered/Resolved]
  - Inguinal mass [Recovered/Resolved]
  - Mass [Not Recovered/Not Resolved]
  - Skin mass [Recovering/Resolving]
  - Mass [Recovering/Resolving]
  - Skin mass [Recovering/Resolving]
  - Skin mass [Recovered/Resolved]
  - Therapeutic response shortened [Recovered/Resolved]

NARRATIVE: CASE EVENT DATE: 202010
